FAERS Safety Report 20583232 (Version 1)
Quarter: 2022Q1

REPORT INFORMATION
  Report Type: Spontaneous
  Country: US (occurrence: US)
  Receive Date: 20220311
  Receipt Date: 20220311
  Transmission Date: 20220423
  Serious: Yes (Other)
  Sender: FDA-Public Use
  Company Number: US-OTSUKA-2022_010802

PATIENT
  Sex: Male
  Weight: 108.86 kg

DRUGS (3)
  1. ABILIFY [Suspect]
     Active Substance: ARIPIPRAZOLE
     Indication: Product used for unknown indication
     Dosage: 20 MG
     Route: 065
     Dates: start: 2011, end: 2014
  2. DIPHENHYDRAMINE [Suspect]
     Active Substance: DIPHENHYDRAMINE
     Indication: Hypersensitivity
     Dosage: 25 MG
  3. CANNABIS SATIVA SUBSP. INDICA TOP [Concomitant]
     Active Substance: CANNABIS SATIVA SUBSP. INDICA TOP
     Indication: Product used for unknown indication
     Dosage: UNK
     Route: 065

REACTIONS (9)
  - Poisoning deliberate [Unknown]
  - Coma [Unknown]
  - Drug abuse [Unknown]
  - Nerve injury [Not Recovered/Not Resolved]
  - Polyp [Unknown]
  - Tooth loss [Unknown]
  - Eating disorder [Unknown]
  - Food craving [Unknown]
  - Overweight [Unknown]
